FAERS Safety Report 23549013 (Version 2)
Quarter: 2024Q1

REPORT INFORMATION
  Report Type: Report from Study
  Country: US (occurrence: US)
  Receive Date: 20240221
  Receipt Date: 20240322
  Transmission Date: 20240410
  Serious: Yes (Other)
  Sender: FDA-Public Use
  Company Number: US-JNJFOC-20240251669

PATIENT
  Age: 50 Year
  Sex: Female

DRUGS (3)
  1. SPRAVATO [Suspect]
     Active Substance: ESKETAMINE
     Indication: Depression
     Dosage: 56 MG, 4 DOSES
     Dates: start: 20231220, end: 20231229
  2. SPRAVATO [Suspect]
     Active Substance: ESKETAMINE
     Dosage: 84 MG, 7 DOSES
     Dates: start: 20240102, end: 20240131
  3. SPRAVATO [Suspect]
     Active Substance: ESKETAMINE
     Dosage: RECENT DOSE
     Dates: start: 20240207, end: 20240207

REACTIONS (3)
  - Device malfunction [Unknown]
  - Incorrect dose administered by device [Unknown]
  - Product administration error [Unknown]

NARRATIVE: CASE EVENT DATE: 20240207
